FAERS Safety Report 8795616 (Version 2)
Quarter: 2021Q3

REPORT INFORMATION
  Report Type: Spontaneous
  Country: DE (occurrence: DE)
  Receive Date: 20120919
  Receipt Date: 20210702
  Transmission Date: 20211014
  Serious: Yes (Other)
  Sender: FDA-Public Use
  Company Number: DE-B.I. PHARMACEUTICALS,INC./RIDGEFIELD-2012-EU-04565GD

PATIENT
  Age: 5 Month

DRUGS (4)
  1. LAMIVUDINE. [Suspect]
     Active Substance: LAMIVUDINE
     Indication: HIV INFECTION
     Dosage: 4 MICROGRAM/KILOGRAM, TWO TIMES A DAY
     Route: 065
  2. NEVIRAPINE. [Suspect]
     Active Substance: NEVIRAPINE
     Indication: HIV INFECTION
     Dosage: 200 MG/M2, TWO TIMES A DAY
     Route: 065
  3. LOPINAVIR/RITONAVIR [Suspect]
     Active Substance: LOPINAVIR\RITONAVIR
     Indication: HIV INFECTION
     Dosage: 300 MG/M2, TWO TIMES A DAY
     Route: 065
  4. ZIDOVUDINE. [Suspect]
     Active Substance: ZIDOVUDINE
     Indication: HIV INFECTION
     Dosage: 180 MG/M2, TWO TIMES A DAY
     Route: 065

REACTIONS (11)
  - Proteinuria [Recovered/Resolved]
  - Off label use [Recovered/Resolved]
  - Albuminuria [Recovered/Resolved]
  - Hypertriglyceridaemia [Recovered/Resolved]
  - Hypertension [Recovered/Resolved]
  - Oedema [Recovered/Resolved]
  - Immune reconstitution inflammatory syndrome [Recovered/Resolved]
  - Nephrotic syndrome [Recovered/Resolved]
  - Pyrexia [Recovered/Resolved]
  - Hypercholesterolaemia [Recovered/Resolved]
  - Hypoalbuminaemia [Recovered/Resolved]
